FAERS Safety Report 20730564 (Version 1)
Quarter: 2022Q2

REPORT INFORMATION
  Report Type: Spontaneous
  Country: US (occurrence: None)
  Receive Date: 20220420
  Receipt Date: 20220420
  Transmission Date: 20220720
  Serious: Yes (Hospitalization)
  Sender: FDA-Public Use
  Company Number: None

PATIENT
  Sex: Male

DRUGS (2)
  1. CYCLOPHOSPHAMIDE [Suspect]
     Active Substance: CYCLOPHOSPHAMIDE
     Indication: Liver transplant
     Dosage: FREQUENCY: TAKE 3 CAPSULES (75 MG TOTAL) BY MOUTH EVERY MORNING AND TAKE 2 CAPSULES (50 MG TOTAL) EV
     Route: 048
     Dates: start: 20190907
  2. MYCOPHENOLIC ACID [Concomitant]
     Active Substance: MYCOPHENOLIC ACID

REACTIONS (1)
  - Therapy interrupted [None]
